FAERS Safety Report 21218654 (Version 2)
Quarter: 2022Q3

REPORT INFORMATION
  Report Type: Spontaneous
  Country: US (occurrence: US)
  Receive Date: 20220816
  Receipt Date: 20220823
  Transmission Date: 20221027
  Serious: Yes (Other)
  Sender: FDA-Public Use
  Company Number: US-HALEON-USCH2022AMR028215

PATIENT
  Sex: Female
  Weight: 64.86 kg

DRUGS (1)
  1. PREPARATION H OINTMENT [Suspect]
     Active Substance: MINERAL OIL\PETROLATUM\PHENYLEPHRINE HYDROCHLORIDE
     Indication: Haemorrhoids
     Dosage: UNK

REACTIONS (7)
  - Anal haemorrhage [Unknown]
  - Constipation [Unknown]
  - Flatulence [Unknown]
  - Diarrhoea [Unknown]
  - Abnormal faeces [Unknown]
  - Wrong technique in product usage process [Unknown]
  - Inappropriate schedule of product administration [Unknown]
